FAERS Safety Report 15411282 (Version 1)
Quarter: 2018Q3

REPORT INFORMATION
  Report Type: Spontaneous
  Country: US (occurrence: US)
  Receive Date: 20180921
  Receipt Date: 20180921
  Transmission Date: 20181010
  Serious: No
  Sender: FDA-Public Use
  Company Number: US-PFIZER INC-2018376366

PATIENT
  Age: 63 Year
  Sex: Male

DRUGS (3)
  1. PRISTIQ EXTENDED?RELEASE [Suspect]
     Active Substance: DESVENLAFAXINE SUCCINATE
     Dosage: 50 MG, UNK
  2. PRISTIQ EXTENDED?RELEASE [Suspect]
     Active Substance: DESVENLAFAXINE SUCCINATE
     Indication: DEPRESSION
     Dosage: 25 MG, UNK
  3. VIBREX [VILAZODONE HYDROCHLORIDE] [Concomitant]
     Indication: DEPRESSION
     Dosage: UNK

REACTIONS (2)
  - Libido decreased [Unknown]
  - Erectile dysfunction [Unknown]
